FAERS Safety Report 6610014-9 (Version None)
Quarter: 2010Q1

REPORT INFORMATION
  Report Type: 
  Country: None (occurrence: None)
  Receive Date: 20100302
  Receipt Date: 20100222
  Transmission Date: 20100710
  Serious: Yes (Life-Threatening, Hospitalization)
  Sender: FDA-Public Use
  Company Number: GB-ROCHE-686647

PATIENT
  Age: 28 Year
  Sex: Female

DRUGS (2)
  1. TAMIFLU [Suspect]
     Indication: ANTIVIRAL TREATMENT
     Route: 065
     Dates: start: 20091012, end: 20091012
  2. ALBUTEROL [Concomitant]
     Indication: ASTHMA

REACTIONS (1)
  - STEVENS-JOHNSON SYNDROME [None]
